FAERS Safety Report 8998051 (Version 1)
Quarter: 2013Q1

REPORT INFORMATION
  Report Type: Spontaneous
  Country: US (occurrence: US)
  Receive Date: 20130104
  Receipt Date: 20130104
  Transmission Date: 20140127
  Serious: Yes (Other)
  Sender: FDA-Public Use
  Company Number: CHPA2012US025720

PATIENT
  Age: 59 Year
  Sex: Female

DRUGS (1)
  1. BENEFIBER W/ WHEAT DEXTRIN [Suspect]
     Indication: BOWEL MOVEMENT IRREGULARITY
     Dosage: 1/2 TSP IN THE MORNING
     Route: 048
     Dates: end: 2011

REACTIONS (4)
  - Convulsion [Not Recovered/Not Resolved]
  - Frequent bowel movements [Recovered/Resolved]
  - Off label use [Unknown]
  - Incorrect dose administered [Unknown]
